FAERS Safety Report 7499312-7 (Version None)
Quarter: 2011Q2

REPORT INFORMATION
  Report Type: 
  Country: None (occurrence: None)
  Receive Date: 20110524
  Receipt Date: 20110520
  Transmission Date: 20111010
  Serious: No
  Sender: FDA-Public Use
  Company Number: US-TEVA-282765USA

PATIENT
  Sex: Male
  Weight: 68.1 kg

DRUGS (2)
  1. PROAIR HFA [Suspect]
     Indication: ASTHMA
     Dosage: 3 OR MORE TIMES DAILY
     Route: 055
  2. SERETIDE [Concomitant]
     Indication: ASTHMA

REACTIONS (1)
  - BREATH ALCOHOL TEST POSITIVE [None]
